FAERS Safety Report 9130782 (Version 1)
Quarter: 2013Q1

REPORT INFORMATION
  Report Type: Spontaneous
  Country: NL (occurrence: NL)
  Receive Date: 20130301
  Receipt Date: 20130301
  Transmission Date: 20140127
  Serious: Yes (Hospitalization)
  Sender: FDA-Public Use
  Company Number: PHHY2013NL020023

PATIENT
  Age: 82 Year
  Sex: Male

DRUGS (4)
  1. ZOMETA [Suspect]
     Indication: PROSTATE CANCER METASTATIC
     Dosage: 4 MG/ 100ML ONCE EVERY 28 DAYS
     Route: 042
  2. ZOMETA [Suspect]
     Dosage: 4 MG/ 100ML ONCE EVERY 28 DAYS
     Route: 042
     Dates: start: 20091209
  3. ZOMETA [Suspect]
     Dosage: 4 MG/ 100ML ONCE EVERY 28 DAYS
     Route: 042
     Dates: start: 20130130
  4. ZOMETA [Suspect]
     Dosage: 4 MG/ 100ML ONCE EVERY 28 DAYS
     Route: 042
     Dates: start: 20130227

REACTIONS (2)
  - Muscular weakness [Recovered/Resolved]
  - Malaise [Recovered/Resolved]
